FAERS Safety Report 14511624 (Version 1)
Quarter: 2018Q1

REPORT INFORMATION
  Report Type: Spontaneous
  Country: US (occurrence: US)
  Receive Date: 20180209
  Receipt Date: 20180209
  Transmission Date: 20180509
  Serious: No
  Sender: FDA-Public Use
  Company Number: US-LEXICON PHARMACEUTICALS, INC-18-1606-00141

PATIENT
  Sex: Female

DRUGS (11)
  1. CENTRUM [Concomitant]
     Active Substance: VITAMINS
  2. DIPHENHYDRAM [Concomitant]
  3. TELOTRISTAT ETHYL [Suspect]
     Active Substance: TELOTRISTAT ETHYL
     Indication: CARCINOID TUMOUR OF THE DUODENUM
     Route: 048
     Dates: start: 20171116
  4. IBUPROFEN. [Concomitant]
     Active Substance: IBUPROFEN
  5. IMODIUM A-D [Concomitant]
     Active Substance: LOPERAMIDE HYDROCHLORIDE
  6. SANDOSTATIN [Concomitant]
     Active Substance: OCTREOTIDE ACETATE
  7. PREDNISONE. [Concomitant]
     Active Substance: PREDNISONE
  8. ESTRADIOL. [Concomitant]
     Active Substance: ESTRADIOL
  9. PROPRANOLOL [Concomitant]
     Active Substance: PROPRANOLOL HYDROCHLORIDE
  10. FOLIC ACID. [Concomitant]
     Active Substance: FOLIC ACID
  11. VITAMIN D3 [Concomitant]
     Active Substance: CHOLECALCIFEROL

REACTIONS (2)
  - Candida infection [Unknown]
  - Night sweats [Unknown]

NARRATIVE: CASE EVENT DATE: 2017
